FAERS Safety Report 5057311-9 (Version None)
Quarter: 2006Q3

REPORT INFORMATION
  Report Type: 
  Country: None (occurrence: None)
  Receive Date: 20060721
  Receipt Date: 20050729
  Transmission Date: 20061208
  Serious: No
  Sender: FDA-Public Use
  Company Number: US-GLAXOSMITHKLINE-A0568290A

PATIENT
  Age: 68 Year
  Sex: Female

DRUGS (8)
  1. AVANDIA [Suspect]
     Route: 048
     Dates: start: 20050713, end: 20050719
  2. METFORMIN [Suspect]
     Route: 048
  3. LISINOPRIL [Concomitant]
  4. ATENOLOL [Concomitant]
  5. STOOL SOFTENER [Concomitant]
  6. SPIRONOLACTONE [Concomitant]
  7. CATAPRES-TTS-1 [Concomitant]
  8. XANAX [Concomitant]

REACTIONS (3)
  - DIARRHOEA [None]
  - HEADACHE [None]
  - MUSCLE SPASMS [None]
